FAERS Safety Report 4946559-7 (Version None)
Quarter: 2006Q1

REPORT INFORMATION
  Report Type: 
  Country: None (occurrence: None)
  Receive Date: 20060317
  Receipt Date: 20060315
  Transmission Date: 20060701
  Serious: Yes (Life-Threatening, Disabling)
  Sender: FDA-Public Use
  Company Number: US-GLAXOSMITHKLINE-A0597701A

PATIENT
  Age: 19 Year
  Sex: Male

DRUGS (9)
  1. COREG [Suspect]
     Indication: DRUG USE FOR UNKNOWN INDICATION
     Dosage: 18.75MG TWICE PER DAY
     Route: 048
  2. LISINOPRIL [Concomitant]
  3. LASIX [Concomitant]
  4. COENZYME Q10 [Concomitant]
  5. THIAMINE [Concomitant]
  6. POTASSIUM [Concomitant]
  7. PULMOZYME [Concomitant]
  8. MIRALAX [Concomitant]
  9. DIETARY SUPPLEMENT [Concomitant]

REACTIONS (8)
  - BLOOD PRESSURE DECREASED [None]
  - DEHYDRATION [None]
  - DIARRHOEA [None]
  - FEELING COLD [None]
  - HAEMATOCRIT DECREASED [None]
  - OCCULT BLOOD POSITIVE [None]
  - THERAPEUTIC RESPONSE UNEXPECTED [None]
  - VIRAL INFECTION [None]
